FAERS Safety Report 21399492 (Version 2)
Quarter: 2022Q4

REPORT INFORMATION
  Report Type: Report from Study
  Country: MX (occurrence: MX)
  Receive Date: 20221001
  Receipt Date: 20221027
  Transmission Date: 20230113
  Serious: Yes (Death, Other)
  Sender: FDA-Public Use
  Company Number: MX-NOVARTISPH-NVSC2022MX222242

PATIENT
  Age: 71 Year
  Sex: Male
  Weight: 85 kg

DRUGS (1)
  1. EXELON [Suspect]
     Active Substance: RIVASTIGMINE TARTRATE
     Indication: Dementia
     Dosage: 1 DOSAGE FORM, QD, (STARTED 1.5 YEARS AGO)
     Route: 062
     Dates: start: 2021, end: 202202

REACTIONS (2)
  - Asphyxia [Fatal]
  - Accident [Fatal]

NARRATIVE: CASE EVENT DATE: 20220522
